FAERS Safety Report 5685383-7 (Version None)
Quarter: 2008Q1

REPORT INFORMATION
  Report Type: 
  Country: None (occurrence: None)
  Receive Date: 20080328
  Receipt Date: 20080318
  Transmission Date: 20080703
  Serious: Yes (Life-Threatening, Hospitalization, Disabling, Other)
  Sender: FDA-Public Use
  Company Number: GB-PFIZER INC-2008025551

PATIENT
  Age: 69 Year
  Sex: Female
  Weight: 51 kg

DRUGS (9)
  1. ATORVASTATIN CALCIUM [Suspect]
     Indication: HYPERCHOLESTEROLAEMIA
     Dates: start: 20040119, end: 20060120
  2. CLARITHROMYCIN [Interacting]
     Indication: HYPERCHOLESTEROLAEMIA
  3. ACETYLSALICYLIC ACID SRT [Concomitant]
  4. BISOPROLOL FUMARATE [Concomitant]
  5. CLOPIDOGREL [Concomitant]
     Dates: start: 20041106, end: 20060122
  6. LANSOPRAZOLE [Concomitant]
  7. NICORANDIL [Concomitant]
  8. PHENOXYMETHYL PENICILLIN [Concomitant]
     Indication: RESPIRATORY TRACT INFECTION
     Dates: start: 20051201, end: 20051201
  9. RAMIPRIL [Concomitant]
     Dates: start: 20040701, end: 20060122

REACTIONS (15)
  - ABASIA [None]
  - ACUTE MYOCARDIAL INFARCTION [None]
  - ANOREXIA [None]
  - ASTHENIA [None]
  - BEDRIDDEN [None]
  - DRUG INTERACTION [None]
  - INFLUENZA LIKE ILLNESS [None]
  - LIVER FUNCTION TEST ABNORMAL [None]
  - LOWER RESPIRATORY TRACT INFECTION [None]
  - MYALGIA [None]
  - MYOPATHY [None]
  - RENAL FAILURE ACUTE [None]
  - RHABDOMYOLYSIS [None]
  - TENDERNESS [None]
  - VENTRICULAR DYSFUNCTION [None]
